FAERS Safety Report 6762106-1 (Version None)
Quarter: 2010Q2

REPORT INFORMATION
  Report Type: 
  Country: None (occurrence: None)
  Receive Date: 20100609
  Receipt Date: 20100430
  Transmission Date: 20101027
  Serious: No
  Sender: FDA-Public Use
  Company Number: US-TYCO HEALTHCARE/MALLINCKRODT-T201001151

PATIENT
  Sex: Male

DRUGS (1)
  1. EXALGO [Suspect]
     Dosage: 8 MG, QD

REACTIONS (2)
  - INSOMNIA [None]
  - TINNITUS [None]
